FAERS Safety Report 4633397-8 (Version None)
Quarter: 2005Q2

REPORT INFORMATION
  Report Type: 
  Country: None (occurrence: None)
  Receive Date: 20050408
  Receipt Date: 20050325
  Transmission Date: 20051028
  Serious: Yes (Death, Hospitalization, Other)
  Sender: FDA-Public Use
  Company Number: USA-2002-0002836

PATIENT
  Age: 45 Year
  Sex: Male
  Weight: 69.8 kg

DRUGS (15)
  1. OXYCONTIN [Suspect]
     Indication: PAIN
     Dosage: 20 MG, BID, ORAL
     Route: 048
     Dates: start: 20010101
  2. LORCET-HD [Suspect]
     Dosage: 10 MG, SEE TEXT, ORAL
     Route: 048
  3. MARIJUANA (CANNABIS) [Suspect]
     Dosage: 40 MG, SEE TEXT, ORAL
     Route: 048
  4. REMERON [Concomitant]
  5. RELAFEN [Concomitant]
  6. NEURONTIN [Concomitant]
  7. ULTRAM [Concomitant]
  8. SOMA [Concomitant]
  9. EFFEXOR [Concomitant]
  10. BIAXIN [Concomitant]
  11. XANAX [Concomitant]
  12. ZANAFLEX [Concomitant]
  13. TRANXENE [Concomitant]
  14. ZOLOFT (SERITRALINE HYDROCHLORIDE) [Concomitant]
  15. DILANTIN [Concomitant]

REACTIONS (24)
  - ALCOHOL WITHDRAWAL SYNDROME [None]
  - ANXIETY [None]
  - ARTHRALGIA [None]
  - COMPLETED SUICIDE [None]
  - DEPRESSION [None]
  - DRUG ABUSER [None]
  - DRUG DEPENDENCE [None]
  - DRUG INEFFECTIVE [None]
  - DRUG WITHDRAWAL SYNDROME [None]
  - GUN SHOT WOUND [None]
  - HYPOAESTHESIA [None]
  - IMPAIRED DRIVING ABILITY [None]
  - INADEQUATE ANALGESIA [None]
  - LOSS OF CONSCIOUSNESS [None]
  - MUSCLE SPASMS [None]
  - MUSCULOSKELETAL STIFFNESS [None]
  - PAIN [None]
  - PAIN IN EXTREMITY [None]
  - PARAESTHESIA [None]
  - POLYSUBSTANCE ABUSE [None]
  - SUICIDAL IDEATION [None]
  - TEMPERATURE INTOLERANCE [None]
  - UPPER RESPIRATORY TRACT INFECTION [None]
  - WEIGHT DECREASED [None]
